FAERS Safety Report 25759234 (Version 3)
Quarter: 2025Q3

REPORT INFORMATION
  Report Type: Spontaneous
  Country: JP (occurrence: JP)
  Receive Date: 20250904
  Receipt Date: 20250916
  Transmission Date: 20251020
  Serious: Yes (Death, Other)
  Sender: ALEXION PHARMACEUTICALS
  Company Number: JP-ASTRAZENECA-250029546_013020_P_1

PATIENT
  Age: 79 Year
  Sex: Male
  Weight: 48 kg

DRUGS (2)
  1. OSIMERTINIB [Suspect]
     Active Substance: OSIMERTINIB
     Indication: Non-small cell lung cancer
     Dosage: 80 MILLIGRAM, QD
     Dates: start: 20240920
  2. NIFEDIPINE [Concomitant]
     Active Substance: NIFEDIPINE
     Dosage: 10 MILLIGRAM, BID

REACTIONS (2)
  - Electrocardiogram QT prolonged [Recovering/Resolving]
  - Death [Fatal]

NARRATIVE: CASE EVENT DATE: 20241023
